FAERS Safety Report 16784778 (Version 1)
Quarter: 2019Q4

REPORT INFORMATION
  Report Type: Spontaneous
  Country: US (occurrence: US)
  Receive Date: 20190906
  Receipt Date: 20190906
  Transmission Date: 20200122
  Serious: Yes (Disabling)
  Sender: FDA-Public Use
  Company Number: None

PATIENT
  Age: 52 Year
  Sex: Male
  Weight: 95.4 kg

DRUGS (1)
  1. CIPRO [Suspect]
     Active Substance: CIPROFLOXACIN HYDROCHLORIDE
     Indication: CELLULITIS
     Dosage: ?          QUANTITY:1 CAPSULE(S);?
     Route: 048
     Dates: start: 20190130, end: 20190130

REACTIONS (6)
  - Fatigue [None]
  - Product complaint [None]
  - Arthralgia [None]
  - Paralysis [None]
  - Asthenia [None]
  - Pallor [None]

NARRATIVE: CASE EVENT DATE: 20190130
